FAERS Safety Report 4990731-7 (Version None)
Quarter: 2006Q2

REPORT INFORMATION
  Report Type: 
  Country: None (occurrence: None)
  Receive Date: 20060427
  Receipt Date: 20060414
  Transmission Date: 20061013
  Serious: Yes (Hospitalization)
  Sender: FDA-Public Use
  Company Number: 2006PV012129

PATIENT
  Age: 60 Year
  Sex: Female
  Weight: 95.8 kg

DRUGS (9)
  1. BYETTA [Suspect]
     Indication: DIABETES MELLITUS NON-INSULIN-DEPENDENT
     Dosage: 10  MCG/; BID  5 MCG; BID
     Dates: start: 20060309
  2. BYETTA [Suspect]
     Indication: DIABETES MELLITUS NON-INSULIN-DEPENDENT
     Dosage: 10  MCG/; BID  5 MCG; BID
     Dates: start: 20060403
  3. LISINOPRIL [Suspect]
     Indication: HYPERTENSION
     Dosage: 80 MG QD 40 MG; QD
     Dates: start: 20060403
  4. ADVAIR DISKUS 100/50 [Concomitant]
  5. ZOLOFT [Concomitant]
  6. LIPITOR [Concomitant]
  7. COMBIVENT [Concomitant]
  8. ASPIRIN [Concomitant]
  9. HUMULIN 70/30 [Concomitant]

REACTIONS (7)
  - BACK PAIN [None]
  - BLOOD GLUCOSE INCREASED [None]
  - CONSTIPATION [None]
  - DIARRHOEA [None]
  - PANCREATITIS ACUTE [None]
  - PLATELET COUNT INCREASED [None]
  - WHITE BLOOD CELL COUNT INCREASED [None]
